FAERS Safety Report 5046213-X (Version None)
Quarter: 2006Q2

REPORT INFORMATION
  Report Type: 
  Country: None (occurrence: None)
  Receive Date: 20060629
  Receipt Date: 20060621
  Transmission Date: 20061013
  Serious: Yes (Other)
  Sender: FDA-Public Use
  Company Number: 2006076885

PATIENT
  Age: 43 Year
  Sex: Male
  Weight: 95.2554 kg

DRUGS (5)
  1. LYRICA [Suspect]
     Indication: PAIN
     Dosage: 150 MG (75 MG 2 IN 1 D)
     Dates: start: 20050801
  2. OXYCODONE HCL [Suspect]
     Dosage: 45 MG (15 MG 3 IN 1 D)
  3. SOMA [Concomitant]
  4. LIDODERM [Concomitant]
  5. KAPANOL (MORPHINE SULFATE) [Concomitant]

REACTIONS (6)
  - DYSPHAGIA [None]
  - EYE DISCHARGE [None]
  - HEADACHE [None]
  - OEDEMA PERIPHERAL [None]
  - PURULENT DISCHARGE [None]
  - SWELLING FACE [None]
